FAERS Safety Report 7316446-8 (Version None)
Quarter: 2011Q1

REPORT INFORMATION
  Report Type: 
  Country: None (occurrence: None)
  Receive Date: 20110225
  Receipt Date: 20110216
  Transmission Date: 20110831
  Serious: Yes (Disabling)
  Sender: FDA-Public Use
  Company Number: PR-MERCK-0805USA02827

PATIENT
  Age: 45 Year
  Sex: Female

DRUGS (2)
  1. FOSAMAX [Suspect]
     Route: 048
     Dates: start: 20020701, end: 20060101
  2. FOSAMAX [Suspect]
     Indication: OSTEOPOROSIS
     Route: 048
     Dates: start: 20010101, end: 20060101

REACTIONS (13)
  - OSTEONECROSIS OF JAW [None]
  - INFECTION [None]
  - TOOTH ABSCESS [None]
  - ROAD TRAFFIC ACCIDENT [None]
  - ORAL INFECTION [None]
  - BONE DENSITY DECREASED [None]
  - UTERINE LEIOMYOMA [None]
  - TOOTH DISORDER [None]
  - LOOSE TOOTH [None]
  - ABSCESS [None]
  - STEROID THERAPY [None]
  - ARTHRALGIA [None]
  - JOINT INJURY [None]
